FAERS Safety Report 20792173 (Version 1)
Quarter: 2022Q2

REPORT INFORMATION
  Report Type: Spontaneous
  Country: US (occurrence: US)
  Receive Date: 20220505
  Receipt Date: 20220505
  Transmission Date: 20220721
  Serious: Yes (Other)
  Sender: FDA-Public Use
  Company Number: US-GILEAD-2022-0580354

PATIENT
  Age: 53 Year
  Sex: Female
  Weight: 44.5 kg

DRUGS (1)
  1. YESCARTA [Suspect]
     Active Substance: AXICABTAGENE CILOLEUCEL
     Indication: Diffuse large B-cell lymphoma
     Dosage: UNK
     Route: 065
     Dates: start: 20220303

REACTIONS (13)
  - Ileus [Unknown]
  - Cytokine release syndrome [Recovered/Resolved]
  - Vomiting [Unknown]
  - Headache [Unknown]
  - Tremor [Unknown]
  - Nausea [Unknown]
  - Confusional state [Unknown]
  - Somnolence [Unknown]
  - Fatigue [Unknown]
  - Memory impairment [Unknown]
  - Hypoalbuminaemia [Unknown]
  - Pleural effusion [Unknown]
  - Decreased appetite [Unknown]

NARRATIVE: CASE EVENT DATE: 20220305
